FAERS Safety Report 5142161-5 (Version None)
Quarter: 2006Q4

REPORT INFORMATION
  Report Type: 
  Country: None (occurrence: None)
  Receive Date: 20061027
  Receipt Date: 20061013
  Transmission Date: 20070319
  Serious: Yes (Hospitalization)
  Sender: FDA-Public Use
  Company Number: 2006S1009710

PATIENT
  Age: 79 Year
  Sex: Female
  Weight: 90.7194 kg

DRUGS (5)
  1. FUROSEMIDE [Suspect]
     Indication: FLUID RETENTION
     Dosage: 20 MG; QD; PO
     Route: 048
     Dates: start: 20030101
  2. SPIRONOLACTONE [Suspect]
     Indication: FLUID RETENTION
     Dosage: 25 MG; QD; PO
     Route: 048
     Dates: start: 20030101
  3. DIGOXIN [Suspect]
     Indication: ATRIAL FIBRILLATION
     Dosage: 125 UG; QD; PO
     Route: 048
     Dates: start: 20030101
  4. LEVOTHYROXINE SODIUM [Concomitant]
  5. DILTIAZEM HCL [Concomitant]

REACTIONS (3)
  - GAIT DISTURBANCE [None]
  - PARAESTHESIA [None]
  - TREMOR [None]
